FAERS Safety Report 8994469 (Version 1)
Quarter: 2012Q4

REPORT INFORMATION
  Report Type: Spontaneous
  Country: US (occurrence: None)
  Receive Date: 20121228
  Receipt Date: 20121228
  Transmission Date: 20130627
  Serious: Yes (Hospitalization)
  Sender: FDA-Public Use
  Company Number: None

PATIENT
  Sex: Male
  Weight: 84.37 kg

DRUGS (1)
  1. TESTOSTERONE ENANTHATE [Suspect]
     Indication: TESTOSTERONE LOW
     Dosage: 1.0ml Q30days IM
     Route: 030
     Dates: start: 20121203

REACTIONS (6)
  - Pain [None]
  - White blood cell count increased [None]
  - Effusion [None]
  - Muscle disorder [None]
  - Pyrexia [None]
  - C-reactive protein increased [None]
